FAERS Safety Report 18567744 (Version 6)
Quarter: 2022Q2

REPORT INFORMATION
  Report Type: Other
  Country: IT (occurrence: IT)
  Receive Date: 20201202
  Receipt Date: 20220523
  Transmission Date: 20220721
  Serious: Yes (Hospitalization, Other)
  Sender: FDA-Public Use
  Company Number: IT-HORIZON-2020HZN01793

PATIENT

DRUGS (1)
  1. PROCYSBI [Suspect]
     Active Substance: CYSTEAMINE BITARTRATE
     Indication: Cystinosis
     Dosage: 20 DOSAGE FORM, QD
     Route: 048
     Dates: start: 20200528, end: 20201118

REACTIONS (5)
  - Gastric disorder [Recovering/Resolving]
  - Oesophagitis [Recovering/Resolving]
  - Weight decreased [Recovering/Resolving]
  - Malabsorption [Recovering/Resolving]
  - Vomiting [Recovering/Resolving]

NARRATIVE: CASE EVENT DATE: 20201001
